FAERS Safety Report 8564555-8 (Version None)
Quarter: 2012Q3

REPORT INFORMATION
  Report Type: 
  Country: None (occurrence: None)
  Receive Date: 20120727
  Receipt Date: 20120727
  Transmission Date: 20120928
  Serious: Yes (Hospitalization)
  Sender: FDA-Public Use
  Company Number: None

PATIENT
  Age: 56 Year
  Sex: Female
  Weight: 52.6 kg

DRUGS (1)
  1. AUY922 UNKNOWN NOVARTIS [Suspect]
     Indication: NON-SMALL CELL LUNG CANCER
     Dosage: 70 MG/M2 WEEKLY, IV
     Route: 042
     Dates: start: 20120525, end: 20120717

REACTIONS (3)
  - NEOPLASM PROGRESSION [None]
  - NON-SMALL CELL LUNG CANCER [None]
  - TUMOUR PAIN [None]
